FAERS Safety Report 20693260 (Version 2)
Quarter: 2022Q2

REPORT INFORMATION
  Report Type: Spontaneous
  Country: UY (occurrence: UY)
  Receive Date: 20220410
  Receipt Date: 20220503
  Transmission Date: 20220720
  Serious: Yes (Other)
  Sender: FDA-Public Use
  Company Number: UY-PFIZER INC-202200505273

PATIENT
  Age: 11 Year
  Sex: Male

DRUGS (1)
  1. ENBREL [Suspect]
     Active Substance: ETANERCEPT
     Indication: Juvenile idiopathic arthritis
     Dosage: 50 MILLIGRAM, QWK
     Route: 065
     Dates: start: 20211028

REACTIONS (6)
  - Juvenile idiopathic arthritis [Not Recovered/Not Resolved]
  - Joint swelling [Not Recovered/Not Resolved]
  - Joint swelling [Not Recovered/Not Resolved]
  - Tendon disorder [Not Recovered/Not Resolved]
  - Joint swelling [Not Recovered/Not Resolved]
  - Pyrexia [Unknown]

NARRATIVE: CASE EVENT DATE: 20220211
